FAERS Safety Report 8518167-2 (Version None)
Quarter: 2012Q3

REPORT INFORMATION
  Report Type: 
  Country: None (occurrence: None)
  Receive Date: 20120718
  Receipt Date: 20111014
  Transmission Date: 20120928
  Serious: Yes (Hospitalization)
  Sender: FDA-Public Use
  Company Number: US-BRISTOL-MYERS SQUIBB COMPANY-16161911

PATIENT
  Age: 60 Year
  Sex: Male

DRUGS (11)
  1. BENADRYL [Concomitant]
  2. LEXAPRO [Concomitant]
  3. COUMADIN [Suspect]
     Dosage: 2MG, 3MG ALSO TAKEN
     Route: 048
  4. VITAMIN D [Concomitant]
  5. FERROUS SULFATE ANHYDROUS [Concomitant]
  6. OXACILLIN SODIUM [Concomitant]
  7. LOVENOX [Concomitant]
     Dosage: 100 BID - UNITS NOS
  8. METOPROLOL SUCCINATE [Concomitant]
  9. DYRENIUM [Concomitant]
  10. WARFARIN SODIUM [Suspect]
  11. POTASSIUM CHLORIDE [Concomitant]

REACTIONS (2)
  - ADVERSE EVENT [None]
  - DERMATITIS [None]
